FAERS Safety Report 10195726 (Version 2)
Quarter: 2014Q2

REPORT INFORMATION
  Report Type: Report from Study
  Country: JP (occurrence: JP)
  Receive Date: 20140527
  Receipt Date: 20140527
  Transmission Date: 20141212
  Serious: Yes (Hospitalization)
  Sender: FDA-Public Use
  Company Number: JP-ROCHE-1394465

PATIENT
  Age: 66 Year
  Sex: Female
  Weight: 46.3 kg

DRUGS (11)
  1. TRASTUZUMAB EMTANSINE [Suspect]
     Indication: HER-2 POSITIVE BREAST CANCER
     Dosage: 3.6MG/KG
     Route: 042
     Dates: start: 20140403, end: 20140507
  2. OXYCONTIN [Suspect]
     Indication: CANCER PAIN
     Dosage: DOSE: 5-200MG?EVERY 12 HOURS
     Route: 048
     Dates: start: 20130530
  3. OPSO [Suspect]
     Indication: CANCER PAIN
     Dosage: DOSE: 5-30MG?AT THE PAIN
     Route: 048
     Dates: start: 20130530
  4. DENOTAS [Concomitant]
     Indication: PROPHYLAXIS
     Route: 048
     Dates: start: 20131212
  5. MAGNESIUM OXIDE [Concomitant]
     Indication: CONSTIPATION
     Route: 048
     Dates: start: 20130530
  6. ACETAMINOPHEN [Concomitant]
     Indication: CANCER PAIN
     Route: 048
     Dates: start: 20131121
  7. NOVAMIN (JAPAN) [Concomitant]
     Indication: NAUSEA
     Route: 048
     Dates: start: 20140410
  8. GATIFLO [Concomitant]
     Indication: CONJUNCTIVITIS
     Dosage: PROPER PROPER QUANTITY
     Route: 031
     Dates: start: 20140313
  9. KENALOG (JAPAN) [Concomitant]
     Indication: STOMATITIS
     Dosage: PROPER PROPER QUANTITY
     Route: 049
     Dates: start: 20140424
  10. HACHIAZULE [Concomitant]
     Indication: STOMATITIS
     Dosage: PROPER PROPER QUANTITY
     Route: 049
     Dates: start: 20140424
  11. DICLOFENAC SODIUM [Concomitant]
     Indication: CANCER PAIN
     Dosage: AT THE PAIN
     Route: 054
     Dates: start: 20140424

REACTIONS (2)
  - Nausea [Recovered/Resolved]
  - C-reactive protein increased [Recovering/Resolving]
